FAERS Safety Report 10101452 (Version 1)
Quarter: 2014Q2

REPORT INFORMATION
  Report Type: Spontaneous
  Country: US (occurrence: None)
  Receive Date: 20140423
  Receipt Date: 20140423
  Transmission Date: 20141212
  Serious: No
  Sender: FDA-Public Use
  Company Number: None

PATIENT
  Age: 53 Year
  Sex: Male
  Weight: 104.33 kg

DRUGS (1)
  1. ALPRAZOLAM ER [Suspect]
     Indication: ANXIETY
     Route: 048
     Dates: start: 20140404, end: 20140418

REACTIONS (4)
  - Anxiety [None]
  - Drug ineffective [None]
  - Insomnia [None]
  - Drug level below therapeutic [None]
